FAERS Safety Report 4950361-X (Version None)
Quarter: 2006Q1

REPORT INFORMATION
  Report Type: 
  Country: None (occurrence: None)
  Receive Date: 20060315
  Receipt Date: 20060227
  Transmission Date: 20060701
  Serious: Yes (Disabling)
  Sender: FDA-Public Use
  Company Number: 8015346

PATIENT
  Age: 24 Month
  Sex: Male

DRUGS (4)
  1. KEPPRA [Suspect]
     Indication: EPILEPSY
     Dosage: 100 MG 2/D PO
     Route: 048
     Dates: start: 20050822, end: 20060101
  2. EPILIM [Concomitant]
  3. CLOBAZAM [Concomitant]
  4. LAMOTRIGINE [Concomitant]

REACTIONS (3)
  - ANOREXIA [None]
  - DYSPHAGIA [None]
  - WEIGHT DECREASED [None]
